FAERS Safety Report 4794445-8 (Version None)
Quarter: 2005Q4

REPORT INFORMATION
  Report Type: 
  Country: None (occurrence: None)
  Receive Date: 20051011
  Receipt Date: 20051004
  Transmission Date: 20060501
  Serious: Yes (Death)
  Sender: FDA-Public Use
  Company Number: US-BRISTOL-MYERS SQUIBB COMPANY-13137013

PATIENT
  Age: 71 Year

DRUGS (3)
  1. METFORMIN HCL [Suspect]
     Route: 048
  2. CLONAZEPAM [Suspect]
     Route: 048
  3. CITALOPRAM [Suspect]
     Route: 048

REACTIONS (3)
  - COMPLETED SUICIDE [None]
  - INTENTIONAL DRUG MISUSE [None]
  - MULTIPLE DRUG OVERDOSE [None]
